FAERS Safety Report 7297809-6 (Version None)
Quarter: 2011Q1

REPORT INFORMATION
  Report Type: 
  Country: None (occurrence: None)
  Receive Date: 20110217
  Receipt Date: 20110207
  Transmission Date: 20110831
  Serious: Yes (Hospitalization, Other)
  Sender: FDA-Public Use
  Company Number: SE-BAYER-2011-011994

PATIENT
  Sex: Female

DRUGS (4)
  1. CIPROXIN [Suspect]
     Dosage: UNK
     Route: 048
     Dates: start: 20100804, end: 20100808
  2. MERONEM [Concomitant]
  3. TAZOCIN [Concomitant]
  4. PREDNISOLON AGEPHA [Concomitant]

REACTIONS (2)
  - ERYTHEMA MULTIFORME [None]
  - ARTHRITIS [None]
